FAERS Safety Report 5510501-0 (Version None)
Quarter: 2007Q4

REPORT INFORMATION
  Report Type: 
  Country: None (occurrence: None)
  Receive Date: 20071108
  Receipt Date: 20071030
  Transmission Date: 20080405
  Serious: Yes (Other)
  Sender: FDA-Public Use
  Company Number: FR-AMGEN-US251383

PATIENT
  Sex: Male

DRUGS (2)
  1. ENBREL [Suspect]
     Indication: PSORIASIS
     Dosage: 50 MG LYOPHILIZED (FREQUENCY UNKNOWN)
     Route: 058
     Dates: start: 20060101, end: 20070101
  2. ENBREL [Suspect]
     Dosage: 50 MG PREFILLED SYRINGE (FREQUENCY UNKNOWN)
     Route: 058
     Dates: start: 20070101, end: 20070101

REACTIONS (2)
  - CYST [None]
  - DRUG INEFFECTIVE [None]
